FAERS Safety Report 5909494-3 (Version None)
Quarter: 2008Q4

REPORT INFORMATION
  Report Type: 
  Country: None (occurrence: None)
  Receive Date: 20081002
  Receipt Date: 20080924
  Transmission Date: 20090506
  Serious: Yes (Hospitalization, Other)
  Sender: FDA-Public Use
  Company Number: 100#08#2008-04536

PATIENT
  Age: 13 Year
  Sex: Male

DRUGS (1)
  1. METHOTREXATE [Suspect]
     Indication: ACUTE LYMPHOCYTIC LEUKAEMIA
     Dosage: 2G/M2

REACTIONS (9)
  - ANAL ULCER [None]
  - ASTHENIA [None]
  - DIARRHOEA HAEMORRHAGIC [None]
  - ERYTHEMA [None]
  - GASTROENTERITIS [None]
  - HAEMOGLOBIN DECREASED [None]
  - LIP ULCERATION [None]
  - MOUTH ULCERATION [None]
  - PLATELET COUNT DECREASED [None]
